FAERS Safety Report 25882698 (Version 1)
Quarter: 2025Q4

REPORT INFORMATION
  Report Type: Spontaneous
  Country: JP (occurrence: JP)
  Receive Date: 20251006
  Receipt Date: 20251006
  Transmission Date: 20260118
  Serious: Yes (Hospitalization)
  Sender: ABBVIE
  Company Number: JP-ABBVIE-6486684

PATIENT
  Age: 75 Year
  Sex: Male

DRUGS (16)
  1. SKYRIZI [Suspect]
     Active Substance: RISANKIZUMAB-RZAA
     Indication: Psoriasis
     Dosage: FORM STRENGTH:150 MILLIGRAM
     Route: 058
     Dates: start: 20230818, end: 20240301
  2. SKYRIZI [Suspect]
     Active Substance: RISANKIZUMAB-RZAA
     Dosage: FORM STRENGTH:150 MILLIGRAM
     Route: 058
     Dates: start: 20241206, end: 20250530
  3. SKYRIZI [Suspect]
     Active Substance: RISANKIZUMAB-RZAA
     Dosage: FORM STRENGTH:150 MILLIGRAM
     Route: 058
     Dates: start: 20240527, end: 20241101
  4. ALBUMIN TANNATE [Concomitant]
     Active Substance: ALBUMIN TANNATE
     Indication: Product used for unknown indication
     Dosage: 3 GRAM
     Route: 048
  5. Clostridium butyricum [Concomitant]
     Indication: Product used for unknown indication
     Route: 048
  6. PANCRELIPASE [Concomitant]
     Active Substance: PANCRELIPASE
     Indication: Product used for unknown indication
  7. ASPIRIN [Concomitant]
     Active Substance: ASPIRIN
     Indication: Product used for unknown indication
     Dosage: 100 MILLIGRAM
     Route: 048
  8. PYRIDOXAL PHOSPHATE [Concomitant]
     Active Substance: PYRIDOXAL PHOSPHATE
     Indication: Product used for unknown indication
     Dosage: 30 MILLIGRAM
     Route: 048
  9. RYZODEG 70/30 [Concomitant]
     Active Substance: INSULIN ASPART\INSULIN DEGLUDEC
     Indication: Product used for unknown indication
  10. Potassium l aspartate nissin [Concomitant]
     Indication: Product used for unknown indication
     Dosage: 600 MILLIGRAM
     Route: 048
  11. EMPAGLIFLOZIN [Concomitant]
     Active Substance: EMPAGLIFLOZIN
     Indication: Product used for unknown indication
     Dosage: 10 MILLIGRAM
  12. BISOPROLOL FUMARATE [Concomitant]
     Active Substance: BISOPROLOL FUMARATE
     Indication: Product used for unknown indication
     Dosage: 1.25 MILLIGRAM
  13. TRAZODONE HYDROCHLORIDE [Concomitant]
     Active Substance: TRAZODONE HYDROCHLORIDE
     Indication: Product used for unknown indication
     Dosage: 25 MILLIGRAM
     Route: 048
  14. LOPERAMIDE HYDROCHLORIDE [Concomitant]
     Active Substance: LOPERAMIDE HYDROCHLORIDE
     Indication: Product used for unknown indication
     Dosage: 4 MILLIGRAM
     Route: 048
  15. LEMBOREXANT [Concomitant]
     Active Substance: LEMBOREXANT
     Indication: Product used for unknown indication
     Dosage: 2.5 MILLIGRAM
     Route: 048
  16. LANSOPRAZOLE [Concomitant]
     Active Substance: LANSOPRAZOLE
     Indication: Product used for unknown indication

REACTIONS (4)
  - Pulmonary tuberculosis [Not Recovered/Not Resolved]
  - C-reactive protein increased [Recovered/Resolved]
  - Jaundice [Recovering/Resolving]
  - Lung opacity [Recovered/Resolved]

NARRATIVE: CASE EVENT DATE: 20240322
